FAERS Safety Report 5576783-4 (Version None)
Quarter: 2007Q4

REPORT INFORMATION
  Report Type: 
  Country: None (occurrence: None)
  Receive Date: 20071228
  Receipt Date: 20071218
  Transmission Date: 20080405
  Serious: Yes (Death)
  Sender: FDA-Public Use
  Company Number: GB-ABBOTT-07P-167-0370474-00

PATIENT
  Sex: Male
  Weight: 83.9 kg

DRUGS (8)
  1. GOPTEN [Suspect]
     Indication: HYPERTENSION
     Route: 048
     Dates: start: 20000908, end: 20070217
  2. ATORVASTATIN [Suspect]
     Indication: HYPERLIPIDAEMIA
     Route: 048
     Dates: start: 20010607, end: 20070217
  3. FENOFIBRATE [Concomitant]
     Indication: HYPERLIPIDAEMIA
     Route: 048
     Dates: start: 20000915, end: 20070217
  4. BENDROFLUMETHIAZIDE [Concomitant]
     Indication: HYPERTENSION
     Route: 048
     Dates: start: 20000511, end: 20070217
  5. ACETYLSALICYLIC ACID SRT [Concomitant]
     Indication: PROPHYLAXIS
     Route: 048
     Dates: start: 20020821, end: 20070217
  6. ACETYLSALICYLIC ACID SRT [Concomitant]
     Indication: CARDIOVASCULAR DISORDER
  7. DOXAZOSIN [Concomitant]
     Indication: HYPERTENSION
     Route: 048
     Dates: start: 20040922, end: 20070217
  8. ZOPICLONE [Concomitant]
     Indication: INSOMNIA
     Route: 048
     Dates: start: 20001106, end: 20070217

REACTIONS (2)
  - MULTI-ORGAN FAILURE [None]
  - PANCREATITIS ACUTE [None]
